FAERS Safety Report 18218806 (Version 1)
Quarter: 2020Q3

REPORT INFORMATION
  Report Type: Spontaneous
  Country: CN (occurrence: CN)
  Receive Date: 20200901
  Receipt Date: 20200901
  Transmission Date: 20201103
  Serious: Yes (Other)
  Sender: FDA-Public Use
  Company Number: CN-BAXTER-2020BAX017720

PATIENT
  Age: 37 Year
  Sex: Female
  Weight: 50 kg

DRUGS (10)
  1. 0.9% SODIUM CHLORIDE INJECTION [Suspect]
     Active Substance: SODIUM CHLORIDE
     Dosage: 4TH CHEMOTHERAPY, FAMAXINE 135 MG + NS 100ML
     Route: 041
     Dates: start: 20200629
  2. FAMAXINE (EPIRUBICIN HYDROCHLORIDE) [Suspect]
     Active Substance: EPIRUBICIN HYDROCHLORIDE
     Dosage: 4TH CHEMOTHERAPY, FAMAXINE 135 MG + NS 100ML
     Route: 041
     Dates: start: 20200629
  3. ENDOXAN [Suspect]
     Active Substance: CYCLOPHOSPHAMIDE
     Indication: BREAST CANCER FEMALE
     Dosage: 1ST?3RD CHEMOTHERAPY, CYCLOPHOSPHAMIDE + NS
     Route: 042
  4. ENDOXAN [Suspect]
     Active Substance: CYCLOPHOSPHAMIDE
     Dosage: 4TH CHEMOTHERAPY, CYCLOPHOSPHAMIDE + NS 45 ML
     Route: 042
     Dates: start: 20200629
  5. 0.9% SODIUM CHLORIDE INJECTION [Suspect]
     Active Substance: SODIUM CHLORIDE
     Indication: MEDICATION DILUTION
     Dosage: 1ST?3RD CHEMOTHERAPY, CYCLOPHOSPHAMIDE + NS
     Route: 042
  6. 0.9% SODIUM CHLORIDE INJECTION [Suspect]
     Active Substance: SODIUM CHLORIDE
     Dosage: DOSE RE?INTRODUCED, CYCLOPHOSPHAMIDE + NS
     Route: 042
  7. FAMAXINE (EPIRUBICIN HYDROCHLORIDE) [Suspect]
     Active Substance: EPIRUBICIN HYDROCHLORIDE
     Indication: BREAST CANCER FEMALE
     Dosage: 1ST?3RD CHEMOTHERAPY, FAMAXINE + NS
     Route: 041
  8. ENDOXAN [Suspect]
     Active Substance: CYCLOPHOSPHAMIDE
     Dosage: DOSE RE?INTRODUCED, CYCLOPHOSPHAMIDE + NS
     Route: 042
  9. 0.9% SODIUM CHLORIDE INJECTION [Suspect]
     Active Substance: SODIUM CHLORIDE
     Dosage: 4TH CHEMOTHERAPY, CYCLOPHOSPHAMIDE 900 MG + NS 45 ML
     Route: 042
     Dates: start: 20200629
  10. 0.9% SODIUM CHLORIDE INJECTION [Suspect]
     Active Substance: SODIUM CHLORIDE
     Dosage: 1ST?3RD CHEMOTHERAPY, FAMAXINE + NS
     Route: 041

REACTIONS (2)
  - Agranulocytosis [Recovered/Resolved]
  - Leukopenia [Recovered/Resolved]

NARRATIVE: CASE EVENT DATE: 20200710
